FAERS Safety Report 7108767-9 (Version None)
Quarter: 2010Q4

REPORT INFORMATION
  Report Type: 
  Country: None (occurrence: None)
  Receive Date: 20101115
  Receipt Date: 20101115
  Transmission Date: 20110411
  Serious: Yes (Life-Threatening)
  Sender: FDA-Public Use
  Company Number: None

PATIENT
  Age: 34 Year
  Sex: Male
  Weight: 61.4 kg

DRUGS (1)
  1. HALOPERIDOL [Suspect]
     Indication: AGITATION
     Dosage: 2-4 MG Q1H PRN IV
     Route: 042
     Dates: start: 20100715, end: 20100717

REACTIONS (10)
  - CARDIAC ARREST [None]
  - HYPOTHERMIA [None]
  - HYPOXIC-ISCHAEMIC ENCEPHALOPATHY [None]
  - POSTURING [None]
  - PULSE ABSENT [None]
  - SHOCK [None]
  - TORSADE DE POINTES [None]
  - UNRESPONSIVE TO STIMULI [None]
  - VENTRICULAR FIBRILLATION [None]
  - VENTRICULAR TACHYCARDIA [None]
